FAERS Safety Report 9016284 (Version 1)
Quarter: 2013Q1

REPORT INFORMATION
  Report Type: Spontaneous
  Country: JP (occurrence: JP)
  Receive Date: 20130116
  Receipt Date: 20130116
  Transmission Date: 20140127
  Serious: Yes (Hospitalization)
  Sender: FDA-Public Use
  Company Number: JP-B.I. PHARMACEUTICALS,INC./RIDGEFIELD-2013-BI-00321GD

PATIENT
  Age: 67 Year
  Sex: Male

DRUGS (2)
  1. DABIGATRAN ETEXILATE [Suspect]
     Indication: ANTICOAGULANT THERAPY
  2. WARFARIN [Suspect]
     Indication: ANTICOAGULANT THERAPY

REACTIONS (3)
  - Cerebral infarction [Not Recovered/Not Resolved]
  - Benign prostatic hyperplasia [Unknown]
  - Pollakiuria [Unknown]
